FAERS Safety Report 9374325 (Version 1)
Quarter: 2013Q2

REPORT INFORMATION
  Report Type: Spontaneous
  Country: US (occurrence: US)
  Receive Date: 20130628
  Receipt Date: 20130628
  Transmission Date: 20140414
  Serious: No
  Sender: FDA-Public Use
  Company Number: US-PFIZER INC-2013192842

PATIENT
  Age: 36 Year
  Sex: Female
  Weight: 54.42 kg

DRUGS (2)
  1. ADVIL [Suspect]
     Indication: HEADACHE
     Dosage: 400 MG, 1X/DAY
  2. INSULIN [Suspect]
     Indication: DIABETES MELLITUS
     Dosage: 03 IU, UNK

REACTIONS (1)
  - Blood glucose increased [Recovered/Resolved]
